FAERS Safety Report 9197836 (Version 3)
Quarter: 2013Q2

REPORT INFORMATION
  Report Type: Report from Study
  Country: US (occurrence: US)
  Receive Date: 20130328
  Receipt Date: 20130515
  Transmission Date: 20140414
  Serious: Yes (Hospitalization)
  Sender: FDA-Public Use
  Company Number: US-US-EMD SERONO, INC.-7201280

PATIENT
  Age: 62 Year
  Sex: Female
  Weight: 53 kg

DRUGS (4)
  1. REBIF [Suspect]
     Indication: MULTIPLE SCLEROSIS
     Route: 058
     Dates: start: 20130315
  2. REBIF [Suspect]
     Route: 058
     Dates: start: 20130329
  3. REBIF [Suspect]
     Route: 058
     Dates: end: 2013
  4. KLONOPIN [Concomitant]
     Indication: ANXIETY

REACTIONS (3)
  - Multiple sclerosis relapse [Recovering/Resolving]
  - Depression [Recovering/Resolving]
  - Headache [Unknown]
